FAERS Safety Report 9212200 (Version 1)
Quarter: 2013Q2

REPORT INFORMATION
  Report Type: Spontaneous
  Country: US (occurrence: US)
  Receive Date: 20130404
  Receipt Date: 20130404
  Transmission Date: 20140414
  Serious: Yes (Hospitalization, Other)
  Sender: FDA-Public Use
  Company Number: US-B.I. PHARMACEUTICALS,INC./RIDGEFIELD-2013-BI-08653BP

PATIENT
  Age: 67 Year
  Sex: Male
  Weight: 92 kg

DRUGS (2)
  1. SPIRIVA [Suspect]
     Indication: CHRONIC OBSTRUCTIVE PULMONARY DISEASE
     Dosage: 18 MCG
     Route: 055
     Dates: start: 2006, end: 2009
  2. SPIRIVA [Suspect]
     Dosage: 18 MCG
     Route: 055
     Dates: start: 2011

REACTIONS (8)
  - Amputation [Recovered/Resolved with Sequelae]
  - Infection [Recovered/Resolved]
  - Skin ulcer [Recovered/Resolved]
  - Poor peripheral circulation [Recovered/Resolved]
  - Dyspnoea [Recovered/Resolved]
  - Product quality issue [Recovered/Resolved]
  - Product quality issue [Recovered/Resolved]
  - Product quality issue [Recovered/Resolved]
